FAERS Safety Report 18674621 (Version 1)
Quarter: 2020Q4

REPORT INFORMATION
  Report Type: Spontaneous
  Country: TR (occurrence: TR)
  Receive Date: 20201229
  Receipt Date: 20201229
  Transmission Date: 20210114
  Serious: Yes (Hospitalization, Other)
  Sender: FDA-Public Use
  Company Number: TR-MACLEODS PHARMACEUTICALS US LTD-MAC2020029591

PATIENT

DRUGS (3)
  1. LOW-MOLECULAR-WEIGHT HEPARIN (LMWH) [Concomitant]
     Indication: ANGINA PECTORIS
     Dosage: 60 MILLIGRAM
     Route: 065
  2. CLOPIDOGREL [Suspect]
     Active Substance: CLOPIDOGREL BISULFATE
     Indication: ANGINA PECTORIS
     Dosage: 300 MILLIGRAM
     Route: 065
  3. ASPIRIN 100 MG [Suspect]
     Active Substance: ASPIRIN
     Indication: ACUTE CORONARY SYNDROME
     Dosage: 100 MILLIGRAM, QD
     Route: 065

REACTIONS (4)
  - Quadriparesis [Recovered/Resolved]
  - Spinal cord injury cervical [Recovered/Resolved]
  - Urinary retention [Not Recovered/Not Resolved]
  - Spinal epidural haematoma [Recovered/Resolved]
